FAERS Safety Report 13414869 (Version 2)
Quarter: 2017Q4

REPORT INFORMATION
  Report Type: Spontaneous
  Country: US (occurrence: US)
  Receive Date: 20170406
  Receipt Date: 20171123
  Transmission Date: 20180320
  Serious: No
  Sender: FDA-Public Use
  Company Number: US-JNJFOC-20170319702

PATIENT
  Age: 20 Year
  Sex: Male

DRUGS (43)
  1. RISPERDAL [Suspect]
     Active Substance: RISPERIDONE
     Indication: TIC
     Dosage: 1 FOR 3 DAYS THEN STOP
     Route: 048
     Dates: start: 20100602
  2. RISPERDAL [Suspect]
     Active Substance: RISPERIDONE
     Indication: TIC
     Route: 048
     Dates: start: 20121107, end: 20131203
  3. RISPERDAL [Suspect]
     Active Substance: RISPERIDONE
     Indication: TIC
     Dosage: 2 TABLETS
     Route: 048
     Dates: start: 20100726, end: 20101001
  4. RISPERDAL [Suspect]
     Active Substance: RISPERIDONE
     Indication: TOURETTE^S DISORDER
     Dosage: 1, 1 A DAY FOR 1 WEEK, THEN 2 A DAY.
     Route: 048
     Dates: start: 20100309, end: 20100420
  5. RISPERIDONE. [Suspect]
     Active Substance: RISPERIDONE
     Indication: AFFECTIVE DISORDER
     Route: 048
     Dates: start: 20131002
  6. RISPERIDONE. [Suspect]
     Active Substance: RISPERIDONE
     Indication: AFFECTIVE DISORDER
     Dosage: 1/2 TABLET
     Route: 048
     Dates: start: 20130407, end: 20131002
  7. RISPERIDONE. [Suspect]
     Active Substance: RISPERIDONE
     Indication: AFFECTIVE DISORDER
     Route: 048
     Dates: start: 20131112
  8. RISPERIDONE. [Suspect]
     Active Substance: RISPERIDONE
     Indication: TOURETTE^S DISORDER
     Route: 048
     Dates: start: 20100309, end: 20110111
  9. RISPERIDONE. [Suspect]
     Active Substance: RISPERIDONE
     Indication: TOURETTE^S DISORDER
     Dosage: 4MG EVERY MORNING,2MG AT BEDTIME
     Route: 048
     Dates: start: 20121113
  10. RISPERIDONE. [Suspect]
     Active Substance: RISPERIDONE
     Indication: TIC
     Route: 048
     Dates: start: 20100309, end: 20110111
  11. RISPERIDONE. [Suspect]
     Active Substance: RISPERIDONE
     Indication: TIC
     Route: 048
     Dates: start: 20131129
  12. RISPERDAL [Suspect]
     Active Substance: RISPERIDONE
     Indication: TOURETTE^S DISORDER
     Route: 048
     Dates: end: 20110111
  13. RISPERIDONE. [Suspect]
     Active Substance: RISPERIDONE
     Indication: TIC
     Dosage: 3MG 2 AT BEDTIME, 4MG 1 IN AM,
     Route: 048
     Dates: start: 20130307
  14. RISPERIDONE. [Suspect]
     Active Substance: RISPERIDONE
     Indication: TIC
     Route: 048
     Dates: start: 20131112
  15. RISPERIDONE. [Suspect]
     Active Substance: RISPERIDONE
     Indication: TIC
     Route: 048
     Dates: start: 20121107
  16. RISPERIDONE. [Suspect]
     Active Substance: RISPERIDONE
     Indication: TIC
     Dosage: 1/2 TABLET
     Route: 048
     Dates: start: 20130407, end: 20131002
  17. RISPERIDONE. [Suspect]
     Active Substance: RISPERIDONE
     Indication: TOURETTE^S DISORDER
     Route: 048
     Dates: start: 20131129
  18. RISPERIDONE. [Suspect]
     Active Substance: RISPERIDONE
     Indication: TOURETTE^S DISORDER
     Route: 048
     Dates: start: 20121107
  19. RISPERIDONE. [Suspect]
     Active Substance: RISPERIDONE
     Indication: TIC
     Route: 048
     Dates: end: 20131203
  20. RISPERIDONE. [Suspect]
     Active Substance: RISPERIDONE
     Indication: TOURETTE^S DISORDER
     Route: 048
     Dates: start: 20131002
  21. RISPERIDONE. [Suspect]
     Active Substance: RISPERIDONE
     Indication: TIC
     Dosage: 1 IN AM,1/2 AT BEDTIME
     Route: 048
     Dates: start: 20130219
  22. RISPERIDONE. [Suspect]
     Active Substance: RISPERIDONE
     Indication: TOURETTE^S DISORDER
     Route: 048
     Dates: start: 20131112
  23. RISPERDAL [Suspect]
     Active Substance: RISPERIDONE
     Indication: TIC
     Dosage: 1, 1 A DAY FOR 1 WEEK, THEN 2 A DAY.
     Route: 048
     Dates: start: 20100309, end: 20100420
  24. RISPERIDONE. [Suspect]
     Active Substance: RISPERIDONE
     Indication: AFFECTIVE DISORDER
     Route: 048
     Dates: end: 20131203
  25. RISPERIDONE. [Suspect]
     Active Substance: RISPERIDONE
     Indication: TIC
     Route: 048
     Dates: start: 20131002
  26. RISPERDAL [Suspect]
     Active Substance: RISPERIDONE
     Indication: TIC
     Route: 048
     Dates: end: 20110111
  27. RISPERDAL [Suspect]
     Active Substance: RISPERIDONE
     Indication: TOURETTE^S DISORDER
     Dosage: 2 TABLETS
     Route: 048
     Dates: start: 20100726, end: 20101001
  28. RISPERIDONE. [Suspect]
     Active Substance: RISPERIDONE
     Indication: AFFECTIVE DISORDER
     Dosage: 4MG EVERY MORNING,2MG AT BEDTIME
     Route: 048
     Dates: start: 20121113
  29. RISPERIDONE. [Suspect]
     Active Substance: RISPERIDONE
     Indication: AFFECTIVE DISORDER
     Dosage: 3MG 2 AT BEDTIME, 4MG 1 IN AM,
     Route: 048
     Dates: start: 20130307
  30. RISPERIDONE. [Suspect]
     Active Substance: RISPERIDONE
     Indication: AFFECTIVE DISORDER
     Route: 048
     Dates: start: 20121107
  31. RISPERIDONE. [Suspect]
     Active Substance: RISPERIDONE
     Indication: AFFECTIVE DISORDER
     Dosage: 1 IN AM,1/2 AT BEDTIME
     Route: 048
     Dates: start: 20130219
  32. RISPERIDONE. [Suspect]
     Active Substance: RISPERIDONE
     Indication: AFFECTIVE DISORDER
     Route: 048
     Dates: start: 20100309, end: 20110111
  33. RISPERIDONE. [Suspect]
     Active Substance: RISPERIDONE
     Indication: AFFECTIVE DISORDER
     Dosage: 4MG IN AM,3MG AT BEDTIME
     Route: 048
     Dates: start: 20130319
  34. RISPERIDONE. [Suspect]
     Active Substance: RISPERIDONE
     Indication: TIC
     Dosage: 4MG IN AM,3MG AT BEDTIME
     Route: 048
     Dates: start: 20130319
  35. RISPERIDONE. [Suspect]
     Active Substance: RISPERIDONE
     Indication: TIC
     Dosage: 4MG EVERY MORNING,2MG AT BEDTIME
     Route: 048
     Dates: start: 20121113
  36. RISPERIDONE. [Suspect]
     Active Substance: RISPERIDONE
     Indication: TOURETTE^S DISORDER
     Dosage: 3MG 2 AT BEDTIME, 4MG 1 IN AM,
     Route: 048
     Dates: start: 20130307
  37. RISPERDAL [Suspect]
     Active Substance: RISPERIDONE
     Indication: TOURETTE^S DISORDER
     Dosage: 1 FOR 3 DAYS THEN STOP
     Route: 048
     Dates: start: 20100602
  38. RISPERDAL [Suspect]
     Active Substance: RISPERIDONE
     Indication: TOURETTE^S DISORDER
     Route: 048
     Dates: start: 20121107, end: 20131203
  39. RISPERIDONE. [Suspect]
     Active Substance: RISPERIDONE
     Indication: AFFECTIVE DISORDER
     Route: 048
     Dates: start: 20131129
  40. RISPERIDONE. [Suspect]
     Active Substance: RISPERIDONE
     Indication: TOURETTE^S DISORDER
     Dosage: 1/2 TABLET
     Route: 048
     Dates: start: 20130407, end: 20131002
  41. RISPERIDONE. [Suspect]
     Active Substance: RISPERIDONE
     Indication: TOURETTE^S DISORDER
     Dosage: 1 IN AM,1/2 AT BEDTIME
     Route: 048
     Dates: start: 20130219
  42. RISPERIDONE. [Suspect]
     Active Substance: RISPERIDONE
     Indication: TOURETTE^S DISORDER
     Dosage: 4MG IN AM,3MG AT BEDTIME
     Route: 048
     Dates: start: 20130319
  43. RISPERIDONE. [Suspect]
     Active Substance: RISPERIDONE
     Indication: TOURETTE^S DISORDER
     Route: 048
     Dates: end: 20131203

REACTIONS (4)
  - Gynaecomastia [Unknown]
  - Emotional disorder [Unknown]
  - Off label use [Unknown]
  - Product use in unapproved indication [Unknown]

NARRATIVE: CASE EVENT DATE: 20100309
